FAERS Safety Report 4880033-1 (Version None)
Quarter: 2006Q1

REPORT INFORMATION
  Report Type: 
  Country: None (occurrence: None)
  Receive Date: 20060111
  Receipt Date: 20051010
  Transmission Date: 20060701
  Serious: No
  Sender: FDA-Public Use
  Company Number: 2005S1000218

PATIENT
  Age: 36 Year
  Weight: 101.8 kg

DRUGS (32)
  1. CUBICIN [Suspect]
     Indication: BACTERAEMIA
     Dosage: 600 MG;Q48H;IV
     Route: 042
     Dates: start: 20050929, end: 20051008
  2. CUBICIN [Suspect]
     Indication: DERMATOFIBROSARCOMA
     Dosage: 600 MG;Q48H;IV
     Route: 042
     Dates: start: 20050929, end: 20051008
  3. CUBICIN [Suspect]
     Indication: MALIGNANT TUMOUR EXCISION
     Dosage: 600 MG;Q48H;IV
     Route: 042
     Dates: start: 20050929, end: 20051008
  4. CUBICIN [Suspect]
     Indication: WOUND INFECTION
     Dosage: 600 MG;Q48H;IV
     Route: 042
     Dates: start: 20050929, end: 20051008
  5. CUBICIN [Suspect]
  6. MAGNESIUM [Concomitant]
  7. HYDROXIDE [Concomitant]
  8. FUROSEMIDE [Concomitant]
  9. VITAMIN B COMPLEX CAP [Concomitant]
  10. CALCIUM GLUCONATE [Concomitant]
  11. LORAZEPAM [Concomitant]
  12. HEPARIN [Concomitant]
  13. FERROUS SULFATE TAB [Concomitant]
  14. OXYCODONE [Concomitant]
  15. PANTOPRAZOLE [Concomitant]
  16. DOCUSATE SODIUM [Concomitant]
  17. TRIAMCTINOLONE [Concomitant]
  18. TRAZODONE [Concomitant]
  19. ESCITALOPRAM OXALATE [Concomitant]
  20. SENNA [Concomitant]
  21. DIPHENHYDRAMINE [Concomitant]
  22. ACETAMINOPHEN [Concomitant]
  23. MORPHINE SULFATE [Concomitant]
  24. PROMETHAZINE [Concomitant]
  25. HYDROCORTISONE [Concomitant]
  26. NYSTATIN [Concomitant]
  27. DOLASETRON [Concomitant]
  28. UROKINASE [Concomitant]
  29. VANCOMYCIN [Concomitant]
  30. TOBRAMYCIN [Concomitant]
  31. GENTAMICIN [Concomitant]
  32. ZOSYN [Concomitant]

REACTIONS (2)
  - CELLULITIS [None]
  - EOSINOPHILIA [None]
